FAERS Safety Report 8440905-8 (Version None)
Quarter: 2012Q2

REPORT INFORMATION
  Report Type: 
  Country: None (occurrence: None)
  Receive Date: 20120615
  Receipt Date: 20120607
  Transmission Date: 20120825
  Serious: Yes (Hospitalization)
  Sender: FDA-Public Use
  Company Number: US-BAYER-2012-029781

PATIENT
  Age: 48 Year
  Sex: Female
  Weight: 61.678 kg

DRUGS (16)
  1. EFFEXOR XR [Concomitant]
     Dosage: 75 MG, UNK
  2. ZYRTEC [Concomitant]
     Dosage: UNK UNK, QD
  3. IBUPROFEN (ADVIL) [Concomitant]
  4. ALPRAZOLAM [Concomitant]
     Indication: ANXIETY
     Dosage: UNK
     Dates: start: 20060601, end: 20111101
  5. LORAZEPAM [Concomitant]
     Indication: ANXIETY
     Dosage: 0.5 MG, UNK
     Dates: start: 20100201, end: 20100401
  6. VITAMIN B6 [Concomitant]
     Dosage: UNK UNK, QD
  7. LEXAPRO [Concomitant]
  8. CYMBALTA [Concomitant]
     Dosage: 20 MG, UNK
     Dates: start: 20100401, end: 20100701
  9. RAMIPRIL [Concomitant]
  10. DIOVAN [Concomitant]
     Dosage: 80 MG, UNK
  11. LEUCOVORIN CALCIUM [Concomitant]
     Dosage: UNK UNK, QD
  12. VITAMIN D [Concomitant]
     Dosage: 800 MG, QD
  13. MULTI-VITAMINS [Concomitant]
     Dosage: UNK UNK, QD
  14. NEXIUM [Concomitant]
     Dosage: 40 MG, UNK
  15. YAZ [Suspect]
     Indication: CONTRACEPTION
     Dosage: UNK
     Dates: start: 20080601, end: 20100401
  16. SIMVASTATIN [Concomitant]
     Dosage: 20 MG, UNK

REACTIONS (2)
  - DEEP VEIN THROMBOSIS [None]
  - PULMONARY EMBOLISM [None]
